FAERS Safety Report 5220744-1 (Version None)
Quarter: 2007Q1

REPORT INFORMATION
  Report Type: 
  Country: None (occurrence: None)
  Receive Date: 20070125
  Receipt Date: 20070125
  Transmission Date: 20070707
  Serious: Yes (Hospitalization)
  Sender: FDA-Public Use
  Company Number: None

PATIENT
  Sex: Male
  Weight: 72.1219 kg

DRUGS (1)
  1. NORCO [Suspect]
     Indication: BACK PAIN
     Dosage: PO
     Route: 048

REACTIONS (5)
  - CHILLS [None]
  - DRUG WITHDRAWAL SYNDROME [None]
  - DYSKINESIA [None]
  - FORMICATION [None]
  - INSOMNIA [None]
